FAERS Safety Report 5560694-4 (Version None)
Quarter: 2007Q4

REPORT INFORMATION
  Report Type: 
  Country: None (occurrence: None)
  Receive Date: 20071215
  Receipt Date: 20071126
  Transmission Date: 20080405
  Serious: No
  Sender: FDA-Public Use
  Company Number: US-ABBOTT-07P-163-0426278-00

PATIENT
  Sex: Female
  Weight: 74.456 kg

DRUGS (3)
  1. HUMIRA [Suspect]
     Indication: PSORIATIC ARTHROPATHY
     Route: 058
     Dates: start: 20060101
  2. HUMIRA [Suspect]
     Indication: PSORIASIS
  3. YAZ [Concomitant]
     Indication: MENSTRUATION IRREGULAR
     Route: 048

REACTIONS (1)
  - INJECTION SITE IRRITATION [None]
